FAERS Safety Report 22323286 (Version 1)
Quarter: 2023Q2

REPORT INFORMATION
  Report Type: Other
  Country: GB (occurrence: GB)
  Receive Date: 20230516
  Receipt Date: 20230516
  Transmission Date: 20230721
  Serious: Yes (Death, Other)
  Sender: FDA-Public Use
  Company Number: None

PATIENT
  Age: 50 Year
  Sex: Male
  Weight: 117 kg

DRUGS (12)
  1. CAPTOPRIL [Suspect]
     Active Substance: CAPTOPRIL
     Indication: Product used for unknown indication
     Dosage: 12.5 MILLIGRAM, BID
     Route: 065
     Dates: start: 19900704, end: 19910209
  2. PREDNISOLONE [Suspect]
     Active Substance: PREDNISOLONE
     Indication: Product used for unknown indication
     Dosage: OCCASIONAL COURSES, TABLET
     Route: 048
  3. VENTOLIN [Suspect]
     Active Substance: ALBUTEROL SULFATE
     Indication: Asthma
     Dosage: 2 DOSAGE FORM, QD (2 AT NIGHT) TABLET
     Route: 048
     Dates: start: 199005, end: 19910115
  4. VENTOLIN [Suspect]
     Active Substance: ALBUTEROL SULFATE
     Dosage: 8 DOSAGE FORM, QD
     Route: 065
     Dates: start: 19860514, end: 19910209
  5. AMILORIDE HYDROCHLORIDE\FUROSEMIDE [Suspect]
     Active Substance: AMILORIDE HYDROCHLORIDE\FUROSEMIDE
     Indication: Product used for unknown indication
     Dosage: 1 DOSAGE FORM, QD
     Route: 048
     Dates: start: 19900618, end: 19910209
  6. NITROLINGUAL [Suspect]
     Active Substance: NITROGLYCERIN
     Indication: Asthma
     Dosage: 15 DOSAGE FORM, QD
     Route: 065
     Dates: start: 19850619, end: 19910209
  7. ADALAT [Suspect]
     Active Substance: NIFEDIPINE
     Indication: Hypertension
     Dosage: 20 MILLIGRAM
     Route: 048
     Dates: start: 19861203, end: 19910209
  8. ISOSORBIDE MONONITRATE [Suspect]
     Active Substance: ISOSORBIDE MONONITRATE
     Indication: Hypertension
     Dosage: 1 DOSAGE FORM, QD
     Route: 065
     Dates: start: 19900704, end: 19910209
  9. SEREVENT DISKUS [Suspect]
     Active Substance: SALMETEROL XINAFOATE
     Indication: Asthma
     Dosage: 1 DOSAGE FORM, BID
     Route: 065
     Dates: start: 19910116, end: 19910209
  10. BECLOMETHASONE DIPROPIONATE [Suspect]
     Active Substance: BECLOMETHASONE DIPROPIONATE
     Indication: Asthma
     Dosage: 8 DOSAGE FORM, QD
     Route: 065
     Dates: start: 19880115, end: 19910209
  11. DIGOXIN [Suspect]
     Active Substance: DIGOXIN
     Indication: Product used for unknown indication
     Dosage: 125 MICROGRAM
     Route: 048
     Dates: start: 19900618, end: 19910209
  12. ASPIRIN [Suspect]
     Active Substance: ASPIRIN
     Indication: Prophylaxis
     Dosage: 75 MILLIGRAM
     Route: 048
     Dates: start: 19900704

REACTIONS (1)
  - Death [Fatal]

NARRATIVE: CASE EVENT DATE: 19910209
